FAERS Safety Report 5899971-6 (Version None)
Quarter: 2008Q3

REPORT INFORMATION
  Report Type: 
  Country: None (occurrence: None)
  Receive Date: 20080926
  Receipt Date: 20080918
  Transmission Date: 20090109
  Serious: Yes (Congenital Anomaly)
  Sender: FDA-Public Use
  Company Number: B0537563A

PATIENT
  Age: 0 Day
  Sex: Male

DRUGS (3)
  1. LAMOTRIGINE [Suspect]
     Dosage: 300MG PER DAY
     Dates: end: 19971228
  2. VALPROATE SODIUM [Suspect]
     Dosage: 800MG PER DAY
     Dates: end: 19971228
  3. FOLIC ACID [Concomitant]
     Dosage: .4MG PER DAY
     Dates: start: 19971228

REACTIONS (9)
  - DEVELOPMENTAL DELAY [None]
  - FOETAL ANTICONVULSANT SYNDROME [None]
  - GASTROOESOPHAGEAL REFLUX DISEASE [None]
  - HYDROCELE [None]
  - HYPOSPADIAS [None]
  - MICROCEPHALY [None]
  - OTITIS MEDIA [None]
  - RENAL FUSION ANOMALY [None]
  - STRABISMUS [None]
